FAERS Safety Report 6168749-0 (Version None)
Quarter: 2009Q2

REPORT INFORMATION
  Report Type: 
  Country: None (occurrence: None)
  Receive Date: 20090427
  Receipt Date: 20090422
  Transmission Date: 20091009
  Serious: Yes (Other)
  Sender: FDA-Public Use
  Company Number: US-MERCK-0904USA03613

PATIENT

DRUGS (2)
  1. JANUVIA [Suspect]
     Indication: TYPE 2 DIABETES MELLITUS
     Route: 048
     Dates: start: 20080101
  2. METFORMIN [Concomitant]
     Route: 065

REACTIONS (2)
  - GALLBLADDER DISORDER [None]
  - PANCREATITIS [None]
